FAERS Safety Report 17186851 (Version 4)
Quarter: 2022Q2

REPORT INFORMATION
  Report Type: Spontaneous
  Country: ES (occurrence: ES)
  Receive Date: 20191220
  Receipt Date: 20220623
  Transmission Date: 20220721
  Serious: Yes (Other)
  Sender: FDA-Public Use
  Company Number: ES-EMA-DD-20191209-SAHU_K-174547

PATIENT
  Age: 49 Year
  Sex: Male

DRUGS (5)
  1. EMTRIVA [Suspect]
     Active Substance: EMTRICITABINE
     Indication: HIV-2 infection
     Dosage: UNK
     Route: 065
  2. TENOFOVIR DISOPROXIL FUMARATE [Suspect]
     Active Substance: TENOFOVIR DISOPROXIL FUMARATE
     Indication: HIV-2 infection
     Dosage: UNK
     Route: 065
  3. RALTEGRAVIR POTASSIUM [Suspect]
     Active Substance: RALTEGRAVIR POTASSIUM
     Indication: HIV-2 infection
     Dosage: UNK
     Route: 048
  4. RALTEGRAVIR POTASSIUM [Suspect]
     Active Substance: RALTEGRAVIR POTASSIUM
     Dosage: UNK
     Route: 048
  5. ATAZANAVIR\RITONAVIR [Suspect]
     Active Substance: ATAZANAVIR\RITONAVIR
     Indication: HIV-2 infection
     Dosage: UNK
     Route: 065

REACTIONS (3)
  - Genotype drug resistance test positive [Unknown]
  - Gene mutation [Unknown]
  - Product use in unapproved indication [Unknown]
